FAERS Safety Report 5562813-2 (Version None)
Quarter: 2007Q4

REPORT INFORMATION
  Report Type: 
  Country: None (occurrence: None)
  Receive Date: 20071217
  Receipt Date: 20071206
  Transmission Date: 20080405
  Serious: Yes (Hospitalization)
  Sender: FDA-Public Use
  Company Number: PHFR2007GB03560

PATIENT
  Age: 14 Year
  Sex: Male

DRUGS (3)
  1. DICLOFENAC [Suspect]
     Indication: JUVENILE ARTHRITIS
     Dosage: 75 MG, Q12H
     Route: 065
  2. METHOTREXATE [Concomitant]
     Route: 065
  3. PREDNISOLONE [Concomitant]
     Route: 065

REACTIONS (6)
  - BLOOD CREATININE INCREASED [None]
  - BLOOD UREA INCREASED [None]
  - DEHYDRATION [None]
  - HERPES ZOSTER DISSEMINATED [None]
  - RENAL FAILURE ACUTE [None]
  - VOMITING [None]
